FAERS Safety Report 25430666 (Version 1)
Quarter: 2025Q2

REPORT INFORMATION
  Report Type: Spontaneous
  Country: JP (occurrence: JP)
  Receive Date: 20250612
  Receipt Date: 20250612
  Transmission Date: 20250716
  Serious: Yes (Hospitalization)
  Sender: BOEHRINGER INGELHEIM
  Company Number: JP-NBI-2025-BI-074913

PATIENT
  Age: 46 Year
  Sex: Female

DRUGS (1)
  1. EMPAGLIFLOZIN\LINAGLIPTIN [Suspect]
     Active Substance: EMPAGLIFLOZIN\LINAGLIPTIN
     Indication: Product used for unknown indication
     Dosage: ADMINISTER AFTER BREAKFAST

REACTIONS (1)
  - Bipolar disorder [Unknown]
